FAERS Safety Report 4766755-1 (Version None)
Quarter: 2005Q3

REPORT INFORMATION
  Report Type: 
  Country: None (occurrence: None)
  Receive Date: 20050912
  Receipt Date: 20050314
  Transmission Date: 20060218
  Serious: Yes (Hospitalization)
  Sender: FDA-Public Use
  Company Number: US-MERCK-0503USA02974

PATIENT
  Age: 72 Year
  Sex: Female
  Weight: 80 kg

DRUGS (4)
  1. VIOXX [Suspect]
     Indication: ARTHRITIS
     Route: 048
     Dates: start: 20031101, end: 20031101
  2. VIOXX [Suspect]
     Route: 048
     Dates: start: 20031101, end: 20040801
  3. ASPIRIN [Concomitant]
     Indication: PROPHYLAXIS
     Route: 048
     Dates: end: 20040823
  4. ASPIRIN [Concomitant]
     Indication: CEREBROVASCULAR ACCIDENT PROPHYLAXIS
     Route: 048
     Dates: end: 20040823

REACTIONS (9)
  - ATHEROSCLEROSIS [None]
  - BLOOD CHOLESTEROL INCREASED [None]
  - CORONARY ARTERY OCCLUSION [None]
  - DYSPEPSIA [None]
  - GASTROOESOPHAGEAL REFLUX DISEASE [None]
  - HAEMATOCHEZIA [None]
  - MYOCARDIAL INFARCTION [None]
  - ULCER HAEMORRHAGE [None]
  - VOMITING [None]
